FAERS Safety Report 5001798-4 (Version None)
Quarter: 2006Q2

REPORT INFORMATION
  Report Type: 
  Country: None (occurrence: None)
  Receive Date: 20060512
  Receipt Date: 20060512
  Transmission Date: 20061013
  Serious: Yes (Other)
  Sender: FDA-Public Use
  Company Number: None

PATIENT
  Sex: Male
  Weight: 147.419 kg

DRUGS (1)
  1. ACIPHEX [Suspect]
     Indication: GASTROOESOPHAGEAL REFLUX DISEASE
     Dosage: 20MG QDAY PO
     Route: 048
     Dates: start: 20060414, end: 20060508

REACTIONS (3)
  - ABNORMAL SLEEP-RELATED EVENT [None]
  - IRRITABILITY [None]
  - LOSS OF DREAMING [None]
